FAERS Safety Report 5205624-X (Version None)
Quarter: 2007Q1

REPORT INFORMATION
  Report Type: 
  Country: None (occurrence: None)
  Receive Date: 20070111
  Receipt Date: 20061227
  Transmission Date: 20070707
  Serious: Yes (Hospitalization)
  Sender: FDA-Public Use
  Company Number: SE-ELI_LILLY_AND_COMPANY-SE200607005017

PATIENT
  Age: 64 Year
  Sex: Female

DRUGS (2)
  1. CYMBALTA [Suspect]
     Indication: DEPRESSION
     Dosage: 60 MG, DAILY (1/D)
     Route: 048
     Dates: start: 20060310, end: 20060324
  2. GLYBURIDE [Concomitant]
     Dosage: UNKNOWN

REACTIONS (2)
  - SUBDURAL HAEMORRHAGE [None]
  - THROMBOCYTOPENIA [None]
